FAERS Safety Report 14028319 (Version 2)
Quarter: 2017Q4

REPORT INFORMATION
  Report Type: Report from Study
  Country: US (occurrence: US)
  Receive Date: 20170930
  Receipt Date: 20171027
  Transmission Date: 20180321
  Serious: Yes (Hospitalization, Other)
  Sender: FDA-Public Use
  Company Number: US-AMGEN-USASL2017145552

PATIENT
  Age: 53 Year
  Sex: Female
  Weight: 86.17 kg

DRUGS (22)
  1. FONDAPARINUX SODIUM. [Concomitant]
     Active Substance: FONDAPARINUX SODIUM
     Dosage: 5 MG, QD
  2. AZATHIOPRINE. [Concomitant]
     Active Substance: AZATHIOPRINE
     Dosage: UNK
     Dates: start: 2009
  3. HYDROCODONE [Concomitant]
     Active Substance: HYDROCODONE
     Indication: PAIN
     Dosage: 5 MG, Q6H
     Route: 048
  4. PREDNISONE. [Concomitant]
     Active Substance: PREDNISONE
     Indication: IMMUNE THROMBOCYTOPENIC PURPURA
     Dosage: 80 MG, QD
     Route: 048
     Dates: start: 201702, end: 201708
  5. ASPIRIN. [Concomitant]
     Active Substance: ASPIRIN
     Dosage: 325 MG, QD
  6. IRON [Concomitant]
     Active Substance: IRON
     Dosage: 160 MG, BID
     Route: 048
  7. LOSARTAN. [Concomitant]
     Active Substance: LOSARTAN
     Indication: PROTEINURIA
  8. NPLATE [Suspect]
     Active Substance: ROMIPLOSTIM
     Dosage: 300 MUG, QWK
     Route: 058
  9. CICLOPIROX OLAMINE. [Concomitant]
     Active Substance: CICLOPIROX OLAMINE
     Indication: FOOT DEFORMITY
     Dosage: 0.77 %, BID
     Route: 061
  10. HYDROCORTISONE. [Concomitant]
     Active Substance: HYDROCORTISONE
     Dosage: 2.5 %, BID
  11. PREDNISONE. [Concomitant]
     Active Substance: PREDNISONE
     Dosage: 20 MG, QD
     Route: 048
  12. PLAQUENIL [Concomitant]
     Active Substance: HYDROXYCHLOROQUINE SULFATE
     Dosage: 60 MG, UNK
     Dates: start: 200709
  13. LOSARTAN. [Concomitant]
     Active Substance: LOSARTAN
     Indication: CHRONIC KIDNEY DISEASE
     Dosage: 25 MG, QD
     Route: 048
  14. NPLATE [Suspect]
     Active Substance: ROMIPLOSTIM
     Indication: IMMUNE THROMBOCYTOPENIC PURPURA
     Dosage: UNK, QWK
     Route: 058
     Dates: start: 2009
  15. NPLATE [Suspect]
     Active Substance: ROMIPLOSTIM
     Dosage: 500 MUG, QWK
     Route: 058
     Dates: start: 201605
  16. WATER FOR INJECTION [Concomitant]
     Active Substance: WATER
     Dosage: UNK
  17. ACETAMINOPHEN. [Concomitant]
     Active Substance: ACETAMINOPHEN
     Indication: PAIN
     Dosage: 500 MG, Q6H
     Route: 048
  18. TACROLIMUS. [Concomitant]
     Active Substance: TACROLIMUS
     Dosage: 0.1 %, BID
     Route: 061
  19. IMMUNOGLOBULIN (IMMUNOGLOBULIN HUMAN NORMAL) [Concomitant]
     Active Substance: HUMAN IMMUNOGLOBULIN G
     Dosage: UNK
     Dates: start: 2009
  20. NPLATE [Suspect]
     Active Substance: ROMIPLOSTIM
     Dosage: 880 MUG, UNK
     Route: 058
     Dates: start: 201602
  21. FONDAPARINUX SODIUM. [Concomitant]
     Active Substance: FONDAPARINUX SODIUM
     Dosage: 7.5 MG/0.6ML, UNK
  22. RITUXIMAB. [Concomitant]
     Active Substance: RITUXIMAB
     Dosage: UNK
     Dates: start: 200906

REACTIONS (27)
  - Lupus nephritis [Unknown]
  - Headache [Recovered/Resolved]
  - Neutrophil count decreased [Unknown]
  - Peripheral vascular disorder [Unknown]
  - Haemorrhage [Unknown]
  - Haemoglobin decreased [Unknown]
  - Vaginal haemorrhage [Unknown]
  - Nephropathy [Unknown]
  - Myocardial infarction [Unknown]
  - Haematocrit decreased [Unknown]
  - Vitamin D deficiency [Unknown]
  - Red blood cell count decreased [Unknown]
  - Platelet count decreased [Unknown]
  - Alanine aminotransferase decreased [Unknown]
  - Pancytopenia [Unknown]
  - Contusion [Not Recovered/Not Resolved]
  - White blood cell count decreased [Unknown]
  - Blood urea increased [Unknown]
  - Subdural haematoma [Unknown]
  - Renal disorder [Unknown]
  - Mean platelet volume increased [Unknown]
  - Wrong technique in product usage process [Unknown]
  - Blood creatinine increased [Unknown]
  - Antiphospholipid syndrome [Unknown]
  - Gastroenteritis [Unknown]
  - Monocyte count decreased [Unknown]
  - Vaginal discharge [Unknown]

NARRATIVE: CASE EVENT DATE: 200910
